FAERS Safety Report 17588725 (Version 2)
Quarter: 2020Q3

REPORT INFORMATION
  Report Type: Spontaneous
  Country: DE (occurrence: DE)
  Receive Date: 20200327
  Receipt Date: 20200728
  Transmission Date: 20201102
  Serious: Yes (Hospitalization, Other)
  Sender: FDA-Public Use
  Company Number: DE-ACCORD-176964

PATIENT
  Sex: Male

DRUGS (14)
  1. CYCLOPHOSPHAMIDE/CYCLOPHOSPHAMIDE MONOHYDRATE [Suspect]
     Active Substance: CYCLOPHOSPHAMIDE
     Indication: BURKITT^S LYMPHOMA STAGE IV
     Dosage: OVER 1 HOUR ON DAY 2
     Route: 064
  2. PREDNISOLONE. [Suspect]
     Active Substance: PREDNISOLONE
     Indication: BURKITT^S LYMPHOMA STAGE IV
     Dosage: ON DAYS 2?5
     Route: 064
  3. FOLINIC ACID [Suspect]
     Active Substance: LEUCOVORIN
     Indication: PROPHYLAXIS
     Dosage: EVERY 6 HOURS
     Route: 064
  4. CYTARABINE/CYTARABINE HYDROCHLORIDE/CYTARABINE OCFOSFATE [Suspect]
     Active Substance: CYTARABINE
     Indication: BURKITT^S LYMPHOMA STAGE IV
     Dosage: OVER 1 HOUR EVERY 12 HOURS ON DAYS 2?6
     Route: 064
  5. GRANULOCYTE COLONY STIMULATING [Suspect]
     Active Substance: GRANULOCYTE COLONY-STIMULATING FACTOR NOS
     Indication: PROPHYLAXIS
     Dosage: 10 MICROG/KG/D SC ON DAYS 6?11
     Route: 064
  6. METHOTREXATE. [Suspect]
     Active Substance: METHOTREXATE
     Indication: BURKITT^S LYMPHOMA STAGE IV
     Dosage: OVER 24 HOURS IV INFUSION ON DAY 8
     Route: 064
  7. DEXAMETHASONE. [Suspect]
     Active Substance: DEXAMETHASONE
     Indication: BURKITT^S LYMPHOMA STAGE IV
     Dosage: ON DAYS 8?12
     Route: 064
  8. MESNA. [Suspect]
     Active Substance: MESNA
     Indication: PROPHYLAXIS
     Dosage: AT 0, 4, AND 8 HOURS AFTER CPA DAY 2
     Route: 064
  9. ETOPOSIDE. [Suspect]
     Active Substance: ETOPOSIDE
     Indication: BURKITT^S LYMPHOMA STAGE IV
     Dosage: OVER 1 HOUR ON DAYS 2?4
     Route: 064
  10. VINCRISTINE [Suspect]
     Active Substance: VINCRISTINE
     Indication: BURKITT^S LYMPHOMA STAGE IV
     Dosage: ON DAY 2
     Route: 064
  11. IFOSFAMIDE. [Suspect]
     Active Substance: IFOSFAMIDE
     Indication: BURKITT^S LYMPHOMA STAGE IV
     Dosage: OVER 1 HOUR ON DAYS 8?12
     Route: 064
  12. DOXORUBICIN [Suspect]
     Active Substance: DOXORUBICIN
     Indication: BURKITT^S LYMPHOMA STAGE IV
     Dosage: OVER 30 MINUTES ON DAY 2
     Route: 064
  13. RITUXIMAB. [Suspect]
     Active Substance: RITUXIMAB
     Indication: BURKITT^S LYMPHOMA STAGE IV
     Dosage: OVER 3 HOURS ON DAY 1
     Route: 064
  14. PREDNISONE. [Suspect]
     Active Substance: PREDNISONE
     Indication: BURKITT^S LYMPHOMA STAGE IV
     Dosage: ON DAYS 1?5
     Route: 064

REACTIONS (3)
  - Premature baby [Unknown]
  - Foetal exposure during pregnancy [Unknown]
  - Hypogammaglobulinaemia [Not Recovered/Not Resolved]
